FAERS Safety Report 11270436 (Version 2)
Quarter: 2015Q3

REPORT INFORMATION
  Report Type: Spontaneous
  Country: FR (occurrence: FR)
  Receive Date: 20150714
  Receipt Date: 20150727
  Transmission Date: 20151125
  Serious: Yes (Hospitalization)
  Sender: FDA-Public Use
  Company Number: FR-SA-2015SA099353

PATIENT
  Age: 80 Year
  Sex: Male

DRUGS (22)
  1. LASILIX [Interacting]
     Active Substance: FUROSEMIDE
     Indication: HYPERTENSION
     Route: 048
     Dates: start: 20150429
  2. LASILIX [Interacting]
     Active Substance: FUROSEMIDE
     Indication: HYPERTENSION
     Route: 048
     Dates: start: 20150504
  3. ALDACTONE [Interacting]
     Active Substance: SPIRONOLACTONE
     Indication: HYPERTENSION
     Dosage: STRENGTH: 25 MG
     Route: 048
     Dates: end: 20150504
  4. DAFALGAN [Concomitant]
     Active Substance: ACETAMINOPHEN
     Indication: PAIN
     Dosage: STRENGTH: 500 MG, MAX 8 CAPSULES PER DAY INITIATED
     Route: 048
  5. MYSOLINE [Concomitant]
     Active Substance: PRIMIDONE
     Indication: MYOCLONUS
     Dosage: STRENGTH: 250 MG
     Route: 048
  6. XATRAL LP [Interacting]
     Active Substance: ALFUZOSIN
     Indication: BENIGN PROSTATIC HYPERPLASIA
     Route: 048
     Dates: start: 20150504
  7. DIFFU  K [Concomitant]
     Active Substance: POTASSIUM CHLORIDE
     Indication: HYPOKALAEMIA
     Route: 048
  8. NEBIVOLOL. [Interacting]
     Active Substance: NEBIVOLOL
     Indication: HYPERTENSION
     Route: 048
  9. XATRAL LP [Interacting]
     Active Substance: ALFUZOSIN
     Indication: BENIGN PROSTATIC HYPERPLASIA
     Route: 048
     Dates: start: 20150427, end: 20150502
  10. IMOVANE [Concomitant]
     Active Substance: ZOPICLONE
     Indication: INSOMNIA
     Dosage: STRENGTH AND FORM: 7.5  MG,   FILM COATED DIVISIBLE TABLET
     Route: 048
  11. REFRESH CELLUVISC [Concomitant]
     Active Substance: CARBOXYMETHYLCELLULOSE SODIUM
     Dosage: 4 MG / 0.4 ML EYE DROPS IN SINGLE-DOSE CONTAINER?3 INSTILLATIONS PER DAY
     Route: 031
  12. PREVISCAN [Concomitant]
     Active Substance: FLUINDIONE
     Indication: THROMBOSIS PROPHYLAXIS
     Dosage: STRENGTH: 20 MG
     Route: 048
  13. SPIRIVA [Concomitant]
     Active Substance: TIOTROPIUM BROMIDE MONOHYDRATE
     Indication: CHRONIC OBSTRUCTIVE PULMONARY DISEASE
     Dosage: STRENGTH AND FORM:18 MICROGRAMS, INHALATION POWDER IN CAPSULE
     Route: 055
  14. PERINDOPRIL [Interacting]
     Active Substance: PERINDOPRIL
     Indication: HYPERTENSION
     Route: 048
     Dates: start: 20150505
  15. PANTOPRAZOLE [Concomitant]
     Active Substance: PANTOPRAZOLE SODIUM
     Indication: DYSPEPSIA
     Route: 048
     Dates: start: 20150412
  16. BROMAZEPAM [Concomitant]
     Active Substance: BROMAZEPAM
     Indication: ANXIETY
     Dosage: STRENGTH: 6 MG, 0.25 MG TABLET PER DAY
     Route: 048
  17. MOVICOL [Concomitant]
     Active Substance: POLYETHYLENE GLYCOL 3350\POTASSIUM CHLORIDE\SODIUM BICARBONATE\SODIUM CHLORIDE
     Indication: CONSTIPATION
     Route: 048
     Dates: end: 20150413
  18. PREVISCAN [Concomitant]
     Active Substance: FLUINDIONE
     Indication: THROMBOSIS PROPHYLAXIS
     Route: 048
     Dates: start: 20150414
  19. PERINDOPRIL [Interacting]
     Active Substance: PERINDOPRIL
     Indication: HYPERTENSION
     Route: 048
  20. UROREC [Concomitant]
     Active Substance: SILODOSIN
     Indication: BENIGN PROSTATIC HYPERPLASIA
     Dosage: STRENGTH: 8 MG
     Route: 048
     Dates: end: 20150427
  21. LASILIX [Suspect]
     Active Substance: FUROSEMIDE
     Indication: HYPERTENSION
     Route: 048
  22. LANSOPRAZOLE. [Concomitant]
     Active Substance: LANSOPRAZOLE
     Indication: DYSPEPSIA
     Route: 048
     Dates: end: 20150424

REACTIONS (4)
  - Vertigo [Recovered/Resolved]
  - Drug interaction [Unknown]
  - Hypotension [Recovered/Resolved]
  - Fatigue [Recovered/Resolved]

NARRATIVE: CASE EVENT DATE: 20150428
